FAERS Safety Report 8762501 (Version 1)
Quarter: 2012Q4

REPORT INFORMATION
  Report Type: 
  Country: US (occurrence: US)
  Receive Date: 20120829
  Receipt Date: 20120829
  Transmission Date: 20130627
  Serious: No
  Sender: FDA-Public Use
  Company Number: US-PFIZER INC-2012208799

PATIENT
  Age: 41 Year
  Sex: Female
  Weight: 81.63 kg

DRUGS (2)
  1. DILANTIN [Suspect]
     Indication: CONVULSION
     Dosage: UNK
     Route: 048
  2. DILANTIN [Suspect]
     Indication: CEREBELLAR ATROPHY
     Dosage: (two 100 mg capsules in the morning and three 100 mg capsules in evening),2x/day
     Route: 048

REACTIONS (1)
  - Drug screen false positive [Recovered/Resolved]
